FAERS Safety Report 15115116 (Version 1)
Quarter: 2018Q3

REPORT INFORMATION
  Report Type: Spontaneous
  Country: US (occurrence: US)
  Receive Date: 20180706
  Receipt Date: 20180706
  Transmission Date: 20181010
  Serious: Yes (Hospitalization)
  Sender: FDA-Public Use
  Company Number: US-ARALEZ PHARMACEUTICALS R+D INC.-2018-ARA-001647

PATIENT
  Sex: Female
  Weight: 64.4 kg

DRUGS (1)
  1. METOPROLOL SUCCINATE. [Suspect]
     Active Substance: METOPROLOL SUCCINATE
     Indication: HYPERTENSION
     Dosage: UNK

REACTIONS (6)
  - Adverse event [Unknown]
  - Unevaluable event [Unknown]
  - Drug dose omission [Unknown]
  - Drug ineffective [Unknown]
  - Chest discomfort [Unknown]
  - Blood pressure fluctuation [Unknown]
